FAERS Safety Report 23880598 (Version 1)
Quarter: 2024Q2

REPORT INFORMATION
  Report Type: Spontaneous
  Country: US (occurrence: US)
  Receive Date: 20240521
  Receipt Date: 20240521
  Transmission Date: 20240715
  Serious: Yes (Congenital Anomaly, Other)
  Sender: FDA-Public Use
  Company Number: US-INTRA-CELLULAR THERAPIES, INC.-2024ICT00759

PATIENT

DRUGS (2)
  1. CAPLYTA [Suspect]
     Active Substance: LUMATEPERONE
     Dosage: 21 MG
     Dates: start: 202311, end: 202402
  2. ADDERALL [Suspect]
     Active Substance: AMPHETAMINE ASPARTATE\AMPHETAMINE SULFATE\DEXTROAMPHETAMINE SACCHARATE\DEXTROAMPHETAMINE SULFATE
     Dosage: UNK
     Dates: end: 202401

REACTIONS (6)
  - Foetal exposure during pregnancy [Recovered/Resolved]
  - Hydrocephalus [Recovered/Resolved]
  - Hydrocele [Recovered/Resolved]
  - Spina bifida [Recovered/Resolved]
  - Exomphalos [Recovered/Resolved]
  - Limb reduction defect [Recovered/Resolved]

NARRATIVE: CASE EVENT DATE: 20231201
